FAERS Safety Report 16406222 (Version 1)
Quarter: 2019Q2

REPORT INFORMATION
  Report Type: Spontaneous
  Country: US (occurrence: US)
  Receive Date: 20190607
  Receipt Date: 20190607
  Transmission Date: 20190711
  Serious: No
  Sender: FDA-Public Use
  Company Number: US-ALLERGAN-1842491US

PATIENT
  Sex: Female

DRUGS (2)
  1. VIBERZI [Suspect]
     Active Substance: ELUXADOLINE
     Dosage: 75 MG, UNKNOWN
     Route: 065
  2. VIBERZI [Suspect]
     Active Substance: ELUXADOLINE
     Indication: PRODUCT USED FOR UNKNOWN INDICATION
     Dosage: ACTUAL: HALF OF A 75 MG TABLET
     Route: 065

REACTIONS (5)
  - Wrong technique in product usage process [Unknown]
  - Abdominal distension [Unknown]
  - Constipation [Unknown]
  - Abdominal pain [Unknown]
  - Incorrect dose administered [Unknown]
